FAERS Safety Report 4365902-3 (Version None)
Quarter: 2004Q2

REPORT INFORMATION
  Report Type: 
  Country: None (occurrence: None)
  Receive Date: 20040527
  Receipt Date: 20040517
  Transmission Date: 20050107
  Serious: Yes (Hospitalization)
  Sender: FDA-Public Use
  Company Number: US-BRISTOL-MYERS SQUIBB COMPANY-12588893

PATIENT
  Sex: Female

DRUGS (1)
  1. ABILIFY [Suspect]

REACTIONS (4)
  - DRUG INEFFECTIVE [None]
  - FAILURE TO THRIVE [None]
  - NEUROLEPTIC MALIGNANT SYNDROME [None]
  - WEIGHT DECREASED [None]
